FAERS Safety Report 11202564 (Version 1)
Quarter: 2015Q2

REPORT INFORMATION
  Report Type: Spontaneous
  Country: US (occurrence: None)
  Receive Date: 20150617
  Receipt Date: 20150617
  Transmission Date: 20150821
  Serious: Yes (Disabling)
  Sender: FDA-Public Use
  Company Number: None

PATIENT
  Age: 85 Year
  Sex: Male
  Weight: 71.5 kg

DRUGS (1)
  1. AZITHROMYCIN [Suspect]
     Active Substance: AZITHROMYCIN ANHYDROUS
     Indication: MYCOBACTERIUM AVIUM COMPLEX INFECTION
     Route: 048
     Dates: start: 20130816, end: 20130913

REACTIONS (6)
  - Condition aggravated [None]
  - Deafness [None]
  - Tinnitus [None]
  - Visual acuity reduced [None]
  - Vision blurred [None]
  - Cardiac failure congestive [None]

NARRATIVE: CASE EVENT DATE: 20130819
